FAERS Safety Report 4662997-4 (Version None)
Quarter: 2005Q2

REPORT INFORMATION
  Report Type: 
  Country: None (occurrence: None)
  Receive Date: 20050513
  Receipt Date: 20050509
  Transmission Date: 20051028
  Serious: Yes (Life-Threatening, Hospitalization)
  Sender: FDA-Public Use
  Company Number: THQ2005A00407

PATIENT
  Age: 84 Year
  Sex: Male

DRUGS (2)
  1. HELICLEAR (LANSOPRAZOLE, CLARITHROMYCIN, AMOXICILLIN) [Suspect]
     Route: 048
  2. LANSOPRAZOLE [Suspect]

REACTIONS (10)
  - ATRIAL FIBRILLATION [None]
  - BLOOD PRESSURE FLUCTUATION [None]
  - DYSPNOEA [None]
  - EXTRASYSTOLES [None]
  - GENERAL PHYSICAL HEALTH DETERIORATION [None]
  - GENERALISED ERYTHEMA [None]
  - GENERALISED OEDEMA [None]
  - HEART RATE ABNORMAL [None]
  - PRURITUS [None]
  - RASH GENERALISED [None]
